FAERS Safety Report 11254093 (Version 1)
Quarter: 2015Q3

REPORT INFORMATION
  Report Type: Spontaneous
  Country: US (occurrence: None)
  Receive Date: 20150708
  Receipt Date: 20150708
  Transmission Date: 20151125
  Serious: Yes (Hospitalization)
  Sender: FDA-Public Use
  Company Number: None

PATIENT
  Age: 56 Year
  Sex: Male
  Weight: 73.94 kg

DRUGS (13)
  1. EPLERENONE. [Suspect]
     Active Substance: EPLERENONE
     Indication: HEPATIC CIRRHOSIS
     Route: 048
     Dates: start: 20150613, end: 20150702
  2. IBUPROFEN. [Concomitant]
     Active Substance: IBUPROFEN
  3. HEPATITIS B SERIES VACCINE [Concomitant]
  4. SPIRONOLACTONE. [Concomitant]
     Active Substance: SPIRONOLACTONE
  5. TIOTROPIUM [Concomitant]
     Active Substance: TIOTROPIUM
  6. AMITRIPTYLINE [Concomitant]
     Active Substance: AMITRIPTYLINE
  7. CHOLECALCIFEROL [Concomitant]
     Active Substance: CHOLECALCIFEROL
  8. EMTRICITABINE 200MG/TENOFOVIR 300MG [Concomitant]
  9. HYDROCODONE/ACETAMINOPHEN [Concomitant]
     Active Substance: ACETAMINOPHEN\HYDROCODONE
  10. RALTEGRAVIR. [Concomitant]
     Active Substance: RALTEGRAVIR
  11. MULTIVITAMIN [Concomitant]
     Active Substance: VITAMINS
  12. THIAMINE. [Concomitant]
     Active Substance: THIAMINE
  13. VITAMIN D/CALCIUM [Concomitant]
     Active Substance: CALCIUM\VITAMIN D

REACTIONS (3)
  - Ammonia increased [None]
  - Fall [None]
  - Lethargy [None]

NARRATIVE: CASE EVENT DATE: 20150702
